FAERS Safety Report 9169223 (Version 1)
Quarter: 2013Q1

REPORT INFORMATION
  Report Type: Spontaneous
  Country: AU (occurrence: AU)
  Receive Date: 20130318
  Receipt Date: 20130318
  Transmission Date: 20140127
  Serious: Yes (Other)
  Sender: FDA-Public Use
  Company Number: AU-ROCHE-709511

PATIENT
  Age: 64 Year
  Sex: Male

DRUGS (7)
  1. CEFTRIAXONE [Suspect]
     Indication: PRODUCT USED FOR UNKNOWN INDICATION
     Route: 042
     Dates: start: 20100303, end: 20100303
  2. AMPICILLIN [Suspect]
     Indication: PRODUCT USED FOR UNKNOWN INDICATION
     Route: 042
     Dates: start: 20100302, end: 20100303
  3. IRBESARTAN [Concomitant]
     Route: 065
  4. HYDROCHLOROTHIAZIDE [Concomitant]
     Route: 065
  5. METOPROLOL [Concomitant]
     Dosage: TAKEN DAILY
     Route: 065
  6. PANTOPRAZOLE [Concomitant]
     Dosage: TAKEN DAILY
     Route: 065
  7. TRANDOLAPRIL [Concomitant]
     Dosage: TAKEN DAILY
     Route: 065

REACTIONS (7)
  - Rash maculo-papular [Recovered/Resolved]
  - Arthralgia [Recovered/Resolved]
  - Chest discomfort [Recovered/Resolved]
  - Dysphagia [Recovered/Resolved]
  - Hypotension [Recovered/Resolved]
  - Pain in extremity [Recovered/Resolved]
  - Sensation of foreign body [Recovered/Resolved]
